FAERS Safety Report 17916532 (Version 3)
Quarter: 2020Q4

REPORT INFORMATION
  Report Type: Report from Study
  Country: RU (occurrence: RU)
  Receive Date: 20200619
  Receipt Date: 20201130
  Transmission Date: 20210113
  Serious: Yes (Hospitalization)
  Sender: FDA-Public Use
  Company Number: RU-ROCHE-2581351

PATIENT
  Age: 52 Year
  Sex: Female
  Weight: 70.2 kg

DRUGS (8)
  1. DOXORUBICIN [Suspect]
     Active Substance: DOXORUBICIN
     Indication: HER2 POSITIVE BREAST CANCER
     Dosage: ON 13/MAY/2019, DOSE OF LAST DOXORUBICIN (110 MG) ADMINISTERED PRIOR TO AE ONSET
     Route: 042
     Dates: start: 20190320
  2. PACLITAXEL. [Suspect]
     Active Substance: PACLITAXEL
     Indication: HER2 POSITIVE BREAST CANCER
     Dosage: ON 29 AUG 2019, DOSE OF LAST PACLITAXEL (146 MG) ADMINISTERED PRIOR TO AE ONSET
     Route: 042
     Dates: start: 20190604
  3. PERTUZUMAB. [Suspect]
     Active Substance: PERTUZUMAB
     Indication: HER2 POSITIVE BREAST CANCER
     Dosage: PERTUZUMAB 420 MG IV (WITH AN INITIAL 840-MG IV LOADING DOSE) EVERY 3 WEEKS?ON 12/MAR/2020, DOSE OF
     Route: 042
     Dates: start: 20190604
  4. ATEZOLIZUMAB. [Suspect]
     Active Substance: ATEZOLIZUMAB
     Indication: HER2 POSITIVE BREAST CANCER
     Dosage: ON 12/MAR/2020, PATIENT MOST RECENT DOSE OF ATEZOLIZUMAB ADMINISTERED PRIOR TO AE ONSET
     Route: 041
     Dates: start: 20190320
  5. BISOPROLOLUM [Concomitant]
     Active Substance: BISOPROLOL FUMARATE
     Indication: HYPERTENSION
     Dates: start: 20190403
  6. EUTHYROX [Concomitant]
     Active Substance: LEVOTHYROXINE SODIUM
     Dates: start: 20200110
  7. TRASTUZUMAB. [Suspect]
     Active Substance: TRASTUZUMAB
     Indication: HER2 POSITIVE BREAST CANCER
     Dosage: TRASTUZUMAB 6 MG/KG IV (WITH AN INITIAL 8-MG/KG IV LOADING DOSE) EVERY 3 WEEKS?ON 12/MAR/2020, DOSE
     Route: 042
     Dates: start: 20190604
  8. CYCLOPHOSPHAMIDE. [Suspect]
     Active Substance: CYCLOPHOSPHAMIDE
     Indication: HER2 POSITIVE BREAST CANCER
     Dosage: ON 13/MAY/2019, DOSE OF LAST CYCLOPHOSPHAMIDE (110 MG) ADMINISTERED PRIOR TO AE AND 1100 MG PRIOR TO
     Route: 042
     Dates: start: 20190320

REACTIONS (1)
  - Radiation pneumonitis [Not Recovered/Not Resolved]

NARRATIVE: CASE EVENT DATE: 20200406
